FAERS Safety Report 19223835 (Version 2)
Quarter: 2021Q2

REPORT INFORMATION
  Report Type: Report from Study
  Country: US (occurrence: US)
  Receive Date: 20210505
  Receipt Date: 20210511
  Transmission Date: 20210717
  Serious: Yes (Hospitalization)
  Sender: FDA-Public Use
  Company Number: US-GILEAD-2021-0511960

PATIENT
  Age: 31 Year
  Sex: Female
  Weight: 54 kg

DRUGS (4)
  1. ADCIRCA [Suspect]
     Active Substance: TADALAFIL
     Indication: PULMONARY ARTERIAL HYPERTENSION
     Route: 065
  2. AMBRISENTAN [Suspect]
     Active Substance: AMBRISENTAN
     Indication: PULMONARY ARTERIAL HYPERTENSION
     Dosage: 5 MG, QD
     Route: 048
     Dates: start: 20160801
  3. REMODULIN [Suspect]
     Active Substance: TREPROSTINIL
     Indication: PULMONARY ARTERIAL HYPERTENSION
     Dosage: 0.026 UG/KG, CONTINUOUS
     Route: 058
     Dates: start: 20201030
  4. REMODULIN [Suspect]
     Active Substance: TREPROSTINIL
     Dosage: 0.040 UG/KG, CONTINUOUS
     Route: 058
     Dates: start: 20201030

REACTIONS (10)
  - Infusion site erythema [Unknown]
  - Hypotension [Unknown]
  - Hypersensitivity [Unknown]
  - Infusion site pain [Unknown]
  - Migraine [Not Recovered/Not Resolved]
  - Intentional product use issue [Recovered/Resolved]
  - Device dislocation [Unknown]
  - Infusion site induration [Unknown]
  - Haemoglobin decreased [Unknown]
  - Dizziness [Not Recovered/Not Resolved]

NARRATIVE: CASE EVENT DATE: 20210426
